FAERS Safety Report 4264983-5 (Version None)
Quarter: 2004Q1

REPORT INFORMATION
  Report Type: 
  Country: None (occurrence: None)
  Receive Date: 20040106
  Receipt Date: 20020204
  Transmission Date: 20041129
  Serious: Yes (Life-Threatening, Hospitalization, Other)
  Sender: FDA-Public Use
  Company Number: WAES 0202USA00230

PATIENT
  Age: 42 Year
  Sex: Male
  Weight: 109 kg

DRUGS (11)
  1. ASPIRIN [Concomitant]
     Dates: start: 19951101
  2. TENORMIN [Concomitant]
     Dates: start: 19951101
  3. LIPITOR [Concomitant]
     Dates: start: 19951101
  4. LOVENOX [Concomitant]
     Indication: ANTICOAGULANT THERAPY
     Dates: start: 20011027, end: 20011103
  5. MONOPRIL [Concomitant]
     Dates: start: 19951101
  6. VIOXX [Suspect]
     Indication: LOCALISED OSTEOARTHRITIS
     Route: 048
     Dates: start: 20010301, end: 20010601
  7. VIOXX [Suspect]
     Route: 048
     Dates: start: 20010601, end: 20010901
  8. VIOXX [Suspect]
     Route: 048
     Dates: start: 20010901, end: 20011027
  9. VIOXX [Suspect]
     Route: 048
     Dates: start: 20010301, end: 20010601
  10. VIOXX [Suspect]
     Route: 048
     Dates: start: 20010601, end: 20010901
  11. VIOXX [Suspect]
     Route: 048
     Dates: start: 20010901, end: 20011027

REACTIONS (3)
  - ACUTE MYOCARDIAL INFARCTION [None]
  - GASTRITIS [None]
  - HYPERTENSION [None]
